FAERS Safety Report 7326670-6 (Version None)
Quarter: 2011Q1

REPORT INFORMATION
  Report Type: 
  Country: None (occurrence: None)
  Receive Date: 20110223
  Receipt Date: 20110216
  Transmission Date: 20110831
  Serious: Yes (Hospitalization)
  Sender: FDA-Public Use
  Company Number: UTC-005273

PATIENT
  Age: 46 Year
  Sex: Female
  Weight: 79.4 kg

DRUGS (3)
  1. REMODULIN [Suspect]
     Dosage: 44.64 UG/KG (0.031 UG/KG, 1 IN 1 MIN), INTRAVENOUS
     Route: 042
     Dates: start: 20091006
  2. TRACLEER [Concomitant]
  3. VIAGRIA (SILDENAFIL) [Concomitant]

REACTIONS (5)
  - FLUSHING [None]
  - CHEST PAIN [None]
  - DIARRHOEA [None]
  - BACK PAIN [None]
  - DYSPNOEA [None]
